FAERS Safety Report 5333642-X (Version None)
Quarter: 2007Q2

REPORT INFORMATION
  Report Type: 
  Country: None (occurrence: None)
  Receive Date: 20070306
  Receipt Date: 20061103
  Transmission Date: 20071010
  Serious: Yes (Hospitalization)
  Sender: FDA-Public Use
  Company Number: A03200606689

PATIENT
  Age: 81 Year
  Sex: Male

DRUGS (2)
  1. PLAVIX [Suspect]
     Dosage: 75 MG QD - ORAL
     Route: 048
     Dates: start: 20040101, end: 20060312
  2. ACETYLSALICYLIC ACID SRT [Concomitant]

REACTIONS (3)
  - EPISTAXIS [None]
  - HAEMOPTYSIS [None]
  - PULMONARY HAEMORRHAGE [None]
